FAERS Safety Report 9291599 (Version 1)
Quarter: 2013Q2

REPORT INFORMATION
  Report Type: Spontaneous
  Country: US (occurrence: US)
  Receive Date: 20130515
  Receipt Date: 20130515
  Transmission Date: 20140414
  Serious: Yes (Hospitalization)
  Sender: FDA-Public Use
  Company Number: US-WATSON-2013-08296

PATIENT
  Age: 32 Year
  Sex: Female
  Weight: 77 kg

DRUGS (1)
  1. FENTANYL-100 (WATSON LABORATORIES) [Suspect]
     Indication: PAIN
     Dosage: 1 PATCH EVERY 3 DAYS
     Route: 062

REACTIONS (1)
  - Premature delivery [Recovered/Resolved]
